FAERS Safety Report 22659242 (Version 1)
Quarter: 2023Q2

REPORT INFORMATION
  Report Type: Spontaneous
  Country: GB (occurrence: GB)
  Receive Date: 20230630
  Receipt Date: 20230630
  Transmission Date: 20230722
  Serious: Yes (Other)
  Sender: FDA-Public Use
  Company Number: GB-MHRA-MED-202306161330595800-MFPKW

PATIENT
  Sex: Female

DRUGS (1)
  1. FEXOFENADINE [Suspect]
     Active Substance: FEXOFENADINE HYDROCHLORIDE
     Indication: Seasonal allergy
     Dosage: 120MG
     Dates: start: 20230517, end: 20230616

REACTIONS (3)
  - Insomnia [Not Recovered/Not Resolved]
  - Feeling jittery [Unknown]
  - Anxiety [Unknown]
